FAERS Safety Report 10781449 (Version 1)
Quarter: 2015Q1

REPORT INFORMATION
  Report Type: Spontaneous
  Country: US (occurrence: None)
  Receive Date: 20150209
  Receipt Date: 20150209
  Transmission Date: 20150721
  Serious: Yes (Hospitalization, Disabling, Other)
  Sender: FDA-Public Use
  Company Number: None

PATIENT
  Age: 40 Year
  Sex: Male
  Weight: 117.94 kg

DRUGS (8)
  1. CELEXA [Concomitant]
     Active Substance: CITALOPRAM HYDROBROMIDE
  2. SEROQUEL [Concomitant]
     Active Substance: QUETIAPINE FUMARATE
  3. CIPROFLOXACIN. [Suspect]
     Active Substance: CIPROFLOXACIN
     Indication: RESPIRATORY TRACT INFECTION
     Dates: start: 20131119, end: 20131231
  4. DEPAKOTE [Concomitant]
     Active Substance: DIVALPROEX SODIUM
  5. IBUPROFEN. [Concomitant]
     Active Substance: IBUPROFEN
  6. NEXIUM [Concomitant]
     Active Substance: ESOMEPRAZOLE MAGNESIUM
  7. NEUROTIN (GABAPENTIN) [Concomitant]
     Active Substance: GABAPENTIN
  8. ULTRACET [Concomitant]
     Active Substance: ACETAMINOPHEN\TRAMADOL HYDROCHLORIDE

REACTIONS (23)
  - Anxiety [None]
  - Memory impairment [None]
  - Diarrhoea [None]
  - Fibromyalgia [None]
  - Vision blurred [None]
  - Nausea [None]
  - Depression [None]
  - Post-traumatic stress disorder [None]
  - Myalgia [None]
  - Pain in extremity [None]
  - Back pain [None]
  - Headache [None]
  - Immune system disorder [None]
  - Muscular weakness [None]
  - Mental impairment [None]
  - Fatigue [None]
  - Suicidal behaviour [None]
  - Disturbance in attention [None]
  - Hyperacusis [None]
  - Gait disturbance [None]
  - Impaired work ability [None]
  - Parosmia [None]
  - Asthenia [None]

NARRATIVE: CASE EVENT DATE: 20131219
